FAERS Safety Report 8943857 (Version 1)
Quarter: 2012Q4

REPORT INFORMATION
  Report Type: 
  Country: US (occurrence: US)
  Receive Date: 20121204
  Receipt Date: 20121204
  Transmission Date: 20130627
  Serious: Yes (Hospitalization)
  Sender: FDA-Public Use
  Company Number: US-ASTELLAS-2012US011393

PATIENT
  Sex: Male

DRUGS (7)
  1. VESICARE [Suspect]
     Indication: HYPERTONIC BLADDER
     Dosage: 5 mg, UID/QD
     Route: 048
  2. NEURONTIN [Concomitant]
     Indication: RESTLESS LEGS SYNDROME
     Dosage: 800 mg, bid
     Route: 048
  3. NOVOLOG MIX [Concomitant]
     Indication: DIABETES MELLITUS
     Dosage: 40 units every morning, 60 units every evening
     Route: 058
  4. LANTUS [Concomitant]
     Indication: DIABETES MELLITUS
     Dosage: 42 units in morning, 35 units in evening
     Route: 058
  5. VYTORIN [Concomitant]
     Indication: BLOOD CHOLESTEROL
     Dosage: 1 DF (10/40), UID/QD
     Route: 048
  6. ANDROGEL [Concomitant]
     Indication: PRODUCT USED FOR UNKNOWN INDICATION
     Dosage: 1.5 g, UID/QD
     Route: 061
  7. CARDURA [Concomitant]
     Indication: PRODUCT USED FOR UNKNOWN INDICATION
     Dosage: UNK
     Route: 065

REACTIONS (1)
  - Diabetes mellitus [Unknown]
